FAERS Safety Report 21757805 (Version 1)
Quarter: 2022Q4

REPORT INFORMATION
  Report Type: Other
  Country: US (occurrence: None)
  Receive Date: 20221221
  Receipt Date: 20221221
  Transmission Date: 20230113
  Serious: Yes (Other)
  Sender: FDA-Public Use
  Company Number: US-ROCHE-3122731

PATIENT
  Age: 17 Year
  Sex: Female

DRUGS (1)
  1. ALTEPLASE [Suspect]
     Active Substance: ALTEPLASE
     Indication: Thrombosis prophylaxis
     Dosage: 0.1 MG/KG/H
     Route: 042

REACTIONS (2)
  - Haemothorax [Recovered/Resolved]
  - Catheter site haemorrhage [Recovered/Resolved]
